FAERS Safety Report 21302964 (Version 1)
Quarter: 2022Q3

REPORT INFORMATION
  Report Type: Spontaneous
  Country: US (occurrence: US)
  Receive Date: 20220907
  Receipt Date: 20220907
  Transmission Date: 20221026
  Serious: Yes (Death)
  Sender: FDA-Public Use
  Company Number: US-MYLANLABS-2022M1089744

PATIENT
  Sex: Male

DRUGS (1)
  1. SEMGLEE (INSULIN GLARGINE-YFGN) [Suspect]
     Active Substance: INSULIN GLARGINE-YFGN
     Indication: Type 2 diabetes mellitus
     Dosage: 33 INTERNATIONAL UNIT, HS ( 33 UNITS AT NIGHT)
     Route: 058

REACTIONS (3)
  - Death [Fatal]
  - Device issue [Unknown]
  - Product quality issue [Unknown]
